FAERS Safety Report 8887701 (Version 1)
Quarter: 2012Q4

REPORT INFORMATION
  Report Type: 
  Country: US (occurrence: US)
  Receive Date: 20121106
  Receipt Date: 20121106
  Transmission Date: 20130627
  Serious: Yes (Hospitalization)
  Sender: FDA-Public Use
  Company Number: US-AMGEN-USASP2012070259

PATIENT
  Age: 60 Year
  Sex: Female

DRUGS (1)
  1. ENBREL [Suspect]
     Indication: PSORIATIC ARTHROPATHY
     Dosage: 50 mg, qwk
     Dates: start: 2007

REACTIONS (12)
  - Muscle rupture [Recovered/Resolved]
  - Rotator cuff repair [Recovered/Resolved]
  - Pain in extremity [Recovered/Resolved]
  - Arthralgia [Recovered/Resolved]
  - Tendon rupture [Recovered/Resolved]
  - Exostosis [Recovered/Resolved]
  - Post procedural complication [Not Recovered/Not Resolved]
  - Osteoarthritis [Unknown]
  - Intervertebral disc protrusion [Recovered/Resolved]
  - Plantar fasciitis [Recovered/Resolved]
  - Injection site pain [Recovered/Resolved]
  - Injection site erythema [Recovered/Resolved]
